FAERS Safety Report 13063044 (Version 1)
Quarter: 2016Q4

REPORT INFORMATION
  Report Type: Spontaneous
  Country: TW (occurrence: TW)
  Receive Date: 20161227
  Receipt Date: 20161227
  Transmission Date: 20170207
  Serious: Yes (Other)
  Sender: FDA-Public Use
  Company Number: TW-AMGEN-TWNSP2016110262

PATIENT
  Sex: Male

DRUGS (2)
  1. ENBREL [Suspect]
     Active Substance: ETANERCEPT
     Indication: PSORIATIC ARTHROPATHY
     Dosage: 50 MG, WEEKLY (ONCE)
     Route: 058
     Dates: start: 201410
  2. ENBREL [Suspect]
     Active Substance: ETANERCEPT
     Dosage: 25 MG, 2X/WEEK
     Route: 058
     Dates: start: 20130422

REACTIONS (6)
  - Heart valve incompetence [Unknown]
  - Dyspnoea [Unknown]
  - Cough [Unknown]
  - Oropharyngeal pain [Unknown]
  - Tonsillitis [Unknown]
  - Nasopharyngitis [Not Recovered/Not Resolved]
